FAERS Safety Report 8043524-0 (Version None)
Quarter: 2012Q1

REPORT INFORMATION
  Report Type: 
  Country: None (occurrence: None)
  Receive Date: 20120112
  Receipt Date: 20120109
  Transmission Date: 20120608
  Serious: Yes (Other)
  Sender: FDA-Public Use
  Company Number: US-PFIZER INC-2012006206

PATIENT

DRUGS (2)
  1. XANAX [Suspect]
     Dosage: UNK
  2. NEURONTIN [Suspect]
     Dosage: UNK

REACTIONS (4)
  - PAIN [None]
  - BACK DISORDER [None]
  - DEPRESSION [None]
  - FALL [None]
